FAERS Safety Report 20657893 (Version 1)
Quarter: 2022Q1

REPORT INFORMATION
  Report Type: Spontaneous
  Country: US (occurrence: None)
  Receive Date: 20220330
  Receipt Date: 20220330
  Transmission Date: 20220424
  Serious: Yes (Hospitalization)
  Sender: FDA-Public Use
  Company Number: None

PATIENT
  Sex: Female

DRUGS (4)
  1. EVEROLIMUS [Suspect]
     Active Substance: EVEROLIMUS
     Indication: Tuberous sclerosis complex
     Dosage: FREQUENCY : DAILY;?
     Route: 048
     Dates: start: 20210619
  2. DIAZEPAM TAB [Concomitant]
  3. LEVETIRACETA TAB [Concomitant]
  4. OXCARBAZEPIN TAB [Concomitant]

REACTIONS (1)
  - Therapy interrupted [None]
